FAERS Safety Report 5852665-5 (Version None)
Quarter: 2008Q3

REPORT INFORMATION
  Report Type: 
  Country: None (occurrence: None)
  Receive Date: 20080821
  Receipt Date: 20080815
  Transmission Date: 20090109
  Serious: Yes (Hospitalization)
  Sender: FDA-Public Use
  Company Number: B0533983A

PATIENT
  Age: 56 Year
  Sex: Female

DRUGS (9)
  1. DEROXAT [Suspect]
     Dosage: 20MG PER DAY
     Route: 048
     Dates: end: 20080718
  2. SEROQUEL [Suspect]
     Dosage: 25MG PER DAY
     Route: 048
     Dates: start: 20071101, end: 20080718
  3. COTENOLOL-MEPHA-NEO [Suspect]
     Indication: ESSENTIAL HYPERTENSION
     Dosage: 25MG PER DAY
     Route: 048
     Dates: end: 20080717
  4. NEXIUM [Concomitant]
     Dosage: 40MG PER DAY
     Route: 048
  5. EUTHYROX [Concomitant]
     Indication: HYPOTHYROIDISM
     Dosage: 75MCG PER DAY
     Route: 048
  6. TRITTICO [Concomitant]
     Dosage: 50MG PER DAY
     Route: 048
     Dates: start: 20071101
  7. ASPIRIN [Concomitant]
     Dosage: 100MG PER DAY
     Route: 048
  8. GLUCOPHAGE [Concomitant]
     Dosage: 500MG PER DAY
     Route: 048
  9. SIMVASTATIN [Concomitant]
     Dosage: 20MG PER DAY
     Route: 048

REACTIONS (2)
  - ELECTROCARDIOGRAM QT INTERVAL ABNORMAL [None]
  - HYPOKALAEMIA [None]
